FAERS Safety Report 14425062 (Version 1)
Quarter: 2018Q1

REPORT INFORMATION
  Report Type: Spontaneous
  Country: US (occurrence: US)
  Receive Date: 20180123
  Receipt Date: 20180123
  Transmission Date: 20180509
  Serious: No
  Sender: FDA-Public Use
  Company Number: US-MYLANLABS-2017M1080193

PATIENT
  Sex: Male

DRUGS (3)
  1. INOMAX [Suspect]
     Active Substance: NITRIC OXIDE
     Indication: PULMONARY HYPERTENSION
     Dosage: UNK
     Dates: end: 20170717
  2. MILRINONE [Suspect]
     Active Substance: MILRINONE
     Indication: NEONATAL RESPIRATORY FAILURE
     Dosage: UNK
     Dates: end: 20170718
  3. REMIFENTANIL [Suspect]
     Active Substance: REMIFENTANIL
     Indication: NEONATAL RESPIRATORY FAILURE
     Dosage: UNK
     Dates: end: 20170717

REACTIONS (1)
  - Hypotension [Recovered/Resolved]

NARRATIVE: CASE EVENT DATE: 20170714
